FAERS Safety Report 11942254 (Version 1)
Quarter: 2016Q1

REPORT INFORMATION
  Report Type: Spontaneous
  Country: IN (occurrence: IN)
  Receive Date: 20160125
  Receipt Date: 20160125
  Transmission Date: 20160526
  Serious: Yes (Death, Other)
  Sender: FDA-Public Use
  Company Number: IN-CIPLA LTD.-2016BE00290

PATIENT

DRUGS (1)
  1. GEMCITABINE [Suspect]
     Active Substance: GEMCITABINE\GEMCITABINE HYDROCHLORIDE
     Indication: HEAD AND NECK CANCER
     Dosage: 100 MG/M2, INTRAVENOUSLY OVER 30 MINUTES ONCE WEEKLY, 1-2 H BEFORE RADIATION, FOR 6 CONSECUTIVE WEEK
     Route: 042

REACTIONS (2)
  - Death [Fatal]
  - Mucosal inflammation [Unknown]
